FAERS Safety Report 5616240-X (Version None)
Quarter: 2008Q1

REPORT INFORMATION
  Report Type: 
  Country: None (occurrence: None)
  Receive Date: 20080205
  Receipt Date: 20080122
  Transmission Date: 20080703
  Serious: Yes (Hospitalization, Other)
  Sender: FDA-Public Use
  Company Number: 2008S1001091

PATIENT
  Age: 65 Year
  Sex: Female

DRUGS (8)
  1. SINEMET [Suspect]
     Indication: PARKINSON'S DISEASE
     Dosage: 100 MG; TWICE A DAY; ORAL, 25 MG; TWICE A DAY;
     Dates: start: 20080110
  2. LIPITOR [Concomitant]
  3. ATACAND [Concomitant]
  4. NEXIUM                                 (OXAZEPAM)               /01479 [Concomitant]
  5. PAROXETINE HCL [Concomitant]
  6. ALEPAM                                         (OXAZEPAM) [Concomitant]
  7. SYMBICORT [Concomitant]
  8. PREMARIN [Concomitant]

REACTIONS (7)
  - ANGER [None]
  - CEREBROVASCULAR ACCIDENT [None]
  - CHILLS [None]
  - FEELING ABNORMAL [None]
  - HYPERHIDROSIS [None]
  - NIGHTMARE [None]
  - SENSATION OF BLOOD FLOW [None]
